FAERS Safety Report 9198045 (Version 2)
Quarter: 2013Q2

REPORT INFORMATION
  Report Type: Spontaneous
  Country: US (occurrence: US)
  Receive Date: 20130328
  Receipt Date: 20130422
  Transmission Date: 20140414
  Serious: Yes (Hospitalization)
  Sender: FDA-Public Use
  Company Number: US-GILEAD-2013-0072537

PATIENT
  Sex: Female

DRUGS (5)
  1. LETAIRIS [Suspect]
     Indication: PULMONARY HYPERTENSION
     Dosage: 5 MG, QD
     Route: 048
     Dates: start: 20121116, end: 201302
  2. LETAIRIS [Suspect]
     Indication: SCLERODERMA
  3. CELLCEPT                           /01275102/ [Concomitant]
  4. PREDNISONE [Concomitant]
  5. REVATIO [Concomitant]

REACTIONS (1)
  - Anaemia [Unknown]
